FAERS Safety Report 4299626-8 (Version None)
Quarter: 2004Q1

REPORT INFORMATION
  Report Type: 
  Country: None (occurrence: None)
  Receive Date: 20040217
  Receipt Date: 20040213
  Transmission Date: 20041129
  Serious: Yes (Hospitalization)
  Sender: FDA-Public Use
  Company Number: 200310539BFR

PATIENT
  Age: 63 Year
  Sex: Male

DRUGS (13)
  1. IZILOX (MOXIFLOXACIN HYDROCHLORIDE) [Suspect]
     Indication: ATYPICAL MYCOBACTERIAL INFECTION
     Dosage: 400 MG, TOTAL DAILY, ORAL
     Route: 048
     Dates: start: 20030813, end: 20030908
  2. MYAMBUTOL [Suspect]
     Indication: ATYPICAL MYCOBACTERIAL INFECTION
     Dosage: 300 MG, TOTAL DAILY, ORAL
     Route: 048
     Dates: start: 20030813, end: 20030908
  3. VIREAD [Suspect]
     Indication: HIV TEST POSITIVE
     Dosage: 245 MG, TOTAL DAILY, ORAL
     Route: 048
     Dates: start: 20030826, end: 20030908
  4. BACTRIM [Suspect]
     Indication: ATYPICAL MYCOBACTERIAL INFECTION
     Dosage: ORAL
     Route: 048
     Dates: start: 20030813, end: 20030908
  5. CLARITHROMYCIN [Suspect]
     Indication: ATYPICAL MYCOBACTERIAL INFECTION
     Dosage: 1 G, TOTAL DAILY, ORAL
     Route: 048
     Dates: start: 20030813, end: 20030908
  6. ANSATIPINE (RIFABUTIN) [Suspect]
     Indication: ATYPICAL MYCOBACTERIAL INFECTION
     Dosage: 450 MG, TOTAL DAILY, ORAL
     Route: 048
     Dates: start: 20030813, end: 20030908
  7. EPIVIR [Concomitant]
  8. ZERIT [Concomitant]
  9. AVLOCARDYL [Concomitant]
  10. AMLOR [Concomitant]
  11. ASPEGIC 325 [Concomitant]
  12. NORVIR [Concomitant]
  13. INVIRASE [Concomitant]

REACTIONS (11)
  - C-REACTIVE PROTEIN INCREASED [None]
  - DRUG HYPERSENSITIVITY [None]
  - EOSINOPHILIA [None]
  - HYPERSENSITIVITY [None]
  - HYPERTENSIVE NEPHROPATHY [None]
  - PROTEINURIA [None]
  - PURPURA [None]
  - PYREXIA [None]
  - RASH PAPULAR [None]
  - TOXIC SKIN ERUPTION [None]
  - URTICARIA [None]
